FAERS Safety Report 5049718-0 (Version None)
Quarter: 2006Q3

REPORT INFORMATION
  Report Type: 
  Country: None (occurrence: None)
  Receive Date: 20060707
  Receipt Date: 20060623
  Transmission Date: 20061208
  Serious: Yes (Other)
  Sender: FDA-Public Use
  Company Number: 2006079740

PATIENT
  Age: 51 Year
  Sex: Male
  Weight: 90.7194 kg

DRUGS (5)
  1. NICOTROL [Suspect]
     Indication: SMOKING CESSATION THERAPY
     Dosage: 4 CARTRIDGES IN ONE, INHALATION
     Route: 055
     Dates: start: 20060622, end: 20060622
  2. NICOTINE [Suspect]
     Indication: SMOKING CESSATION THERAPY
     Dosage: 3 PIECES, ORAL
     Route: 048
     Dates: start: 20060622
  3. LISINOPRIL [Concomitant]
  4. FENOFIBRATE [Concomitant]
  5. ATENOLOL [Concomitant]

REACTIONS (3)
  - ABNORMAL DREAMS [None]
  - HALLUCINATION [None]
  - INCORRECT DOSE ADMINISTERED [None]
